FAERS Safety Report 25526585 (Version 4)
Quarter: 2025Q4

REPORT INFORMATION
  Report Type: Spontaneous
  Country: EU (occurrence: EU)
  Receive Date: 20250707
  Receipt Date: 20251015
  Transmission Date: 20260117
  Serious: Yes (Other)
  Sender: NOVARTIS
  Company Number: EU-002147023-NVSC2025FR106455

PATIENT
  Age: 30 Year
  Sex: Female

DRUGS (1)
  1. COSENTYX [Suspect]
     Active Substance: SECUKINUMAB
     Indication: Hidradenitis
     Dosage: 1 DOSAGE FORM (300 MG/2ML), (ONE INJECTION PER WEEK OVER 5 WEEKS)
     Route: 065

REACTIONS (2)
  - Abdominal pain [Unknown]
  - Injection site pain [Unknown]
